FAERS Safety Report 20281778 (Version 16)
Quarter: 2023Q1

REPORT INFORMATION
  Report Type: Report from Study
  Country: CN (occurrence: None)
  Receive Date: 20220103
  Receipt Date: 20230227
  Transmission Date: 20230417
  Serious: Yes (Hospitalization)
  Sender: FDA-Public Use
  Company Number: CN-ROCHE-2988600

PATIENT
  Age: 58 Year
  Sex: Male
  Weight: 65 kg

DRUGS (15)
  1. TIRAGOLUMAB [Suspect]
     Active Substance: TIRAGOLUMAB
     Indication: Oesophageal squamous cell carcinoma metastatic
     Dosage: ON 08/DEC/2021, HE RECEIVED MOST RECENT DOSE OF TIRAGOLUMAB PRIOR TO ONSET OF ADVERSE EVENT/SERIOUS
     Route: 042
     Dates: start: 20210526
  2. ATEZOLIZUMAB [Suspect]
     Active Substance: ATEZOLIZUMAB
     Indication: Oesophageal squamous cell carcinoma metastatic
     Dosage: ON 08/DEC/2021, HE RECEIVED MOST RECENT DOSE OF ATEZOLIZUMAB PRIOR TO ONSET OF ADVERSE EVENT/SERIOUS
     Route: 041
     Dates: start: 20210526
  3. PACLITAXEL [Suspect]
     Active Substance: PACLITAXEL
     Indication: Oesophageal squamous cell carcinoma metastatic
     Dosage: ON 21/SEP/2021, HE RECEIVED MOST RECENT DOSE OF PACLITAXEL (315 MG) PRIOR TO ONSET OF ADVERSE EVENT/
     Route: 042
     Dates: start: 20210526
  4. CISPLATIN [Suspect]
     Active Substance: CISPLATIN
     Indication: Oesophageal squamous cell carcinoma metastatic
     Dosage: ON 21/SEP/2021, HE RECEIVED MOST RECENT DOSE OF CISPLATIN (110 MG) PRIOR TO ONSET OF ADVERSE EVENT/S
     Route: 042
     Dates: start: 20210526
  5. LANSOPRAZOLE [Concomitant]
     Active Substance: LANSOPRAZOLE
     Indication: Prophylaxis
     Route: 048
     Dates: start: 20211228, end: 20220129
  6. LACTULOSE [Concomitant]
     Active Substance: LACTULOSE
     Indication: Constipation
     Route: 048
     Dates: start: 20211231, end: 20211231
  7. PREDNISONE ACETATE [Concomitant]
     Active Substance: PREDNISONE ACETATE
     Route: 048
     Dates: start: 20220107, end: 20220129
  8. L-GLUTAMINE AND SODIUM GUALENATE [Concomitant]
     Route: 048
     Dates: start: 20211228, end: 20220118
  9. L-GLUTAMINE AND SODIUM GUALENATE [Concomitant]
     Route: 048
     Dates: start: 20220110
  10. VITAMIN C [Concomitant]
     Active Substance: ASCORBIC ACID
     Route: 042
     Dates: start: 20211228, end: 20220107
  11. LEUCOGEN [ASPARAGINASE] [Concomitant]
     Indication: Thrombocytopenia
     Route: 048
     Dates: start: 20220110
  12. LEVOTHYROXINE SODIUM [Concomitant]
     Active Substance: LEVOTHYROXINE SODIUM
     Indication: Hypothyroidism
     Route: 048
     Dates: start: 20220110, end: 20221130
  13. OMEPRAZOLE SODIUM [Concomitant]
     Active Substance: OMEPRAZOLE SODIUM
     Indication: Gastritis
     Route: 042
     Dates: start: 20211231, end: 20220110
  14. OMEPRAZOLE SODIUM [Concomitant]
     Active Substance: OMEPRAZOLE SODIUM
     Dates: start: 20211228, end: 20220110
  15. ROXATIDINE ACETATE HYDROCHLORIDE [Concomitant]
     Active Substance: ROXATIDINE ACETATE HYDROCHLORIDE
     Indication: Gastritis
     Route: 042
     Dates: start: 20211228, end: 20220110

REACTIONS (2)
  - Hyperthyroidism [Recovered/Resolved]
  - Immune-mediated myocarditis [Recovered/Resolved]

NARRATIVE: CASE EVENT DATE: 20211215
